FAERS Safety Report 5735012-9 (Version None)
Quarter: 2008Q2

REPORT INFORMATION
  Report Type: 
  Country: None (occurrence: None)
  Receive Date: 20080512
  Receipt Date: 20080507
  Transmission Date: 20081010
  Serious: Yes (Hospitalization, Other)
  Sender: FDA-Public Use
  Company Number: US-MERCK-0705USA04162

PATIENT
  Age: 59 Year
  Sex: Female
  Weight: 56 kg

DRUGS (4)
  1. FOSAMAX [Suspect]
     Indication: OSTEOPOROSIS
     Route: 048
     Dates: start: 19980101, end: 19990101
  2. FOSAMAX [Suspect]
     Route: 048
  3. FOSAMAX [Suspect]
     Route: 048
     Dates: start: 20030101
  4. SYNTHROID [Concomitant]
     Indication: HYPOTHYROIDISM
     Route: 065
     Dates: start: 19770101

REACTIONS (27)
  - ANXIETY [None]
  - APPENDICITIS [None]
  - ARTHRALGIA [None]
  - ARTHRITIS [None]
  - BACK DISORDER [None]
  - CHEST PAIN [None]
  - DEHYDRATION [None]
  - DEVICE RELATED INFECTION [None]
  - DISTURBANCE IN ATTENTION [None]
  - DRUG HYPERSENSITIVITY [None]
  - EAR INFECTION [None]
  - GASTRIC ULCER [None]
  - GINGIVAL DISORDER [None]
  - HEART RATE IRREGULAR [None]
  - HYPERLIPIDAEMIA [None]
  - HYPOTENSION [None]
  - INFECTION [None]
  - MAJOR DEPRESSION [None]
  - OESOPHAGITIS [None]
  - ORAL INFECTION [None]
  - ORAL PAIN [None]
  - OSTEONECROSIS [None]
  - PALPITATIONS [None]
  - PHARYNGEAL CYST [None]
  - RESORPTION BONE INCREASED [None]
  - VARICOSE VEIN [None]
  - VENOUS STASIS [None]
